FAERS Safety Report 8965594 (Version 1)
Quarter: 2012Q4

REPORT INFORMATION
  Report Type: Spontaneous
  Country: GB (occurrence: None)
  Receive Date: 20121205
  Receipt Date: 20121205
  Transmission Date: 20130627
  Serious: No
  Sender: FDA-Public Use
  Company Number: AUR-APL-2012-05071

PATIENT
  Age: 73 Year
  Sex: Female

DRUGS (1)
  1. NAPROXEN (NAPROXEN) [Suspect]
     Indication: PAIN
     Route: 048
     Dates: end: 20121011

REACTIONS (1)
  - Epistaxis [None]
